FAERS Safety Report 25989884 (Version 1)
Quarter: 2025Q4

REPORT INFORMATION
  Report Type: Report from Study
  Country: US (occurrence: US)
  Receive Date: 20251103
  Receipt Date: 20251103
  Transmission Date: 20260117
  Serious: Yes (Other)
  Sender: pharmaAND
  Company Number: US-Pharmaand-2025001045

PATIENT
  Sex: Female

DRUGS (1)
  1. RUBRACA [Suspect]
     Active Substance: RUCAPARIB CAMSYLATE
     Indication: Ovarian cancer
     Dosage: 600MG TWICE DAILY
     Route: 048

REACTIONS (3)
  - Neuropathy peripheral [Unknown]
  - Memory impairment [Not Recovered/Not Resolved]
  - Urinary tract infection [Not Recovered/Not Resolved]
